FAERS Safety Report 16374132 (Version 7)
Quarter: 2022Q4

REPORT INFORMATION
  Report Type: Report from Study
  Country: US (occurrence: US)
  Receive Date: 20190530
  Receipt Date: 20221229
  Transmission Date: 20230113
  Serious: Yes (Hospitalization, Other)
  Sender: FDA-Public Use
  Company Number: US-SHIRE-US201917377

PATIENT
  Age: 20 Year
  Sex: Male

DRUGS (1)
  1. IDURSULFASE [Suspect]
     Active Substance: IDURSULFASE
     Indication: Mucopolysaccharidosis II
     Dosage: UNK UNK, 1/WEEK
     Route: 042
     Dates: start: 20070131

REACTIONS (7)
  - Cardiac arrest [Recovered/Resolved]
  - Vascular device infection [Recovered/Resolved]
  - Influenza [Recovering/Resolving]
  - Respiratory disorder [Recovered/Resolved]
  - Poor venous access [Recovered/Resolved]
  - Staphylococcus test positive [Unknown]
  - Skin disorder [Unknown]

NARRATIVE: CASE EVENT DATE: 20190514
